FAERS Safety Report 22588504 (Version 1)
Quarter: 2023Q2

REPORT INFORMATION
  Report Type: Other
  Country: GB (occurrence: GB)
  Receive Date: 20230612
  Receipt Date: 20230612
  Transmission Date: 20230721
  Serious: Yes (Other)
  Sender: FDA-Public Use
  Company Number: GB-MHRA-MED-202305300956146470-DSFQR

PATIENT

DRUGS (1)
  1. HYDROXYCHLOROQUINE SULFATE [Suspect]
     Active Substance: HYDROXYCHLOROQUINE SULFATE
     Indication: Specialist consultation
     Dosage: 200 MILLIGRAM, BID
     Route: 065
     Dates: start: 20230503, end: 20230515

REACTIONS (7)
  - Suicidal behaviour [Recovered/Resolved]
  - Abdominal pain upper [Recovered/Resolved]
  - Dizziness [Recovered/Resolved]
  - Headache [Recovered/Resolved]
  - Blepharospasm [Recovered/Resolved]
  - Depressed mood [Recovered/Resolved]
  - Anxiety [Not Recovered/Not Resolved]
